FAERS Safety Report 7335209-0 (Version None)
Quarter: 2011Q1

REPORT INFORMATION
  Report Type: 
  Country: None (occurrence: None)
  Receive Date: 20110307
  Receipt Date: 20110302
  Transmission Date: 20110831
  Serious: Yes (Death, Other)
  Sender: FDA-Public Use
  Company Number: US-PFIZER INC-2010150956

PATIENT
  Sex: Male

DRUGS (10)
  1. CHLORZOXAZONE [Concomitant]
     Indication: MUSCLE SPASMS
  2. SERTRALINE [Concomitant]
     Indication: DEPRESSION
     Dosage: UNK
     Dates: start: 20080701, end: 20091101
  3. SERTRALINE [Concomitant]
     Indication: ANXIETY
  4. CHANTIX [Suspect]
     Indication: SMOKING CESSATION THERAPY
     Dosage: STARTER PACK 1MG (1 PILL) DAILY
     Dates: start: 20080101, end: 20091101
  5. ALPRAZOLAM [Concomitant]
     Indication: SMOKING CESSATION THERAPY
     Dosage: UNK
     Dates: start: 20080131, end: 20091101
  6. ALPRAZOLAM [Concomitant]
     Indication: STRESS
  7. CHLORZOXAZONE [Concomitant]
     Indication: PAIN
     Dosage: UNK
     Dates: start: 20080131, end: 20091101
  8. AZITHROMYCIN [Concomitant]
     Indication: ANTIBIOTIC THERAPY
     Dosage: UNK
     Dates: start: 20080901, end: 20091101
  9. FLUTICASONE [Concomitant]
     Indication: CHRONIC OBSTRUCTIVE PULMONARY DISEASE
     Dosage: UNK
     Dates: start: 20090601, end: 20091101
  10. COMBIVENT [Concomitant]
     Indication: CHRONIC OBSTRUCTIVE PULMONARY DISEASE
     Dosage: UNK
     Dates: start: 20081101, end: 20091101

REACTIONS (3)
  - DEPRESSION [None]
  - COMPLETED SUICIDE [None]
  - ANXIETY [None]
